FAERS Safety Report 23148764 (Version 1)
Quarter: 2023Q4

REPORT INFORMATION
  Report Type: Spontaneous
  Country: GB (occurrence: GB)
  Receive Date: 20231106
  Receipt Date: 20231106
  Transmission Date: 20240109
  Serious: Yes (Other)
  Sender: FDA-Public Use
  Company Number: None

PATIENT
  Age: 80 Year
  Sex: Male
  Weight: 76 kg

DRUGS (12)
  1. TICAGRELOR [Suspect]
     Active Substance: TICAGRELOR
     Indication: Anticoagulant therapy
     Dosage: SUGAR FREE
     Route: 048
  2. ASPIRIN [Concomitant]
     Active Substance: ASPIRIN
     Indication: Product used for unknown indication
     Dosage: 1 DOSAGE FORMS DAILY; UNIT DOSE: 1DF, FREQUENCY: ONCE DAILY
     Dates: start: 20230119
  3. ATORVASTATIN [Concomitant]
     Active Substance: ATORVASTATIN
     Indication: Product used for unknown indication
     Dosage: 1 DOSAGE FORMS DAILY; AT NIGHT, UNIT DOSE: 1DF
     Dates: start: 20230119
  4. BISOPROLOL [Concomitant]
     Active Substance: BISOPROLOL\BISOPROLOL FUMARATE
     Indication: Product used for unknown indication
     Dosage: 1 DOSAGE FORMS DAILY; UNIT DOSE: 1DF, FREQUENCY: ONCE DAILY
     Dates: start: 20230119
  5. COCODAMOL [Concomitant]
     Active Substance: ACETAMINOPHEN\CODEINE PHOSPHATE
     Indication: Product used for unknown indication
     Dosage: 4 DOSAGE FORMS DAILY; IN THE MORNING AND AT BED TIME, UNIT DOSE: 2DF
     Dates: start: 20230915
  6. LANSOPRAZOLE [Concomitant]
     Active Substance: LANSOPRAZOLE
     Indication: Product used for unknown indication
     Dosage: 1 DOSAGE FORMS DAILY; UNIT DOSE: 1DF, FREQUENCY: ONCE DAILY
     Dates: start: 20230119
  7. METFORMIN [Concomitant]
     Active Substance: METFORMIN HYDROCHLORIDE
     Indication: Product used for unknown indication
     Dosage: 3 DOSAGE FORMS DAILY; UNIT DOSE: 1DF, FREQUENCY: THRICE DAILY
     Dates: start: 20230915
  8. RAMIPRIL [Concomitant]
     Active Substance: RAMIPRIL
     Indication: Product used for unknown indication
     Dosage: 1 DOSAGE FORMS DAILY; UNIT DOSE: 1DF, FREQUENCY: ONCE DAILY
     Dates: start: 20230119
  9. SERTRALINE [Concomitant]
     Active Substance: SERTRALINE HYDROCHLORIDE
     Indication: Product used for unknown indication
     Dosage: USE AS DIRECTED
     Dates: start: 20230915
  10. LANOLIN\ZINC OXIDE [Concomitant]
     Active Substance: LANOLIN\ZINC OXIDE
     Indication: Product used for unknown indication
     Dosage: USE AS DIRECTED
     Dates: start: 20230119
  11. TAMSULOSIN HYDROCHLORIDE [Concomitant]
     Active Substance: TAMSULOSIN HYDROCHLORIDE
     Indication: Product used for unknown indication
     Dosage: 1 DOSAGE FORMS DAILY; UNIT DOSE: 1DF, FREQUENCY: ONCE DAILY
     Dates: start: 20230119
  12. ACETAMINOPHEN\CODEINE PHOSPHATE [Concomitant]
     Active Substance: ACETAMINOPHEN\CODEINE PHOSPHATE
     Indication: Product used for unknown indication
     Dosage: 4 DOSAGE FORMS DAILY; IN THE MORNING AND 2 AT BED TIME, DURATION: 238 DAYS
     Dates: start: 20230119, end: 20230914

REACTIONS (1)
  - Essential thrombocythaemia [Recovered/Resolved]
